FAERS Safety Report 5341245-6 (Version None)
Quarter: 2007Q2

REPORT INFORMATION
  Report Type: 
  Country: None (occurrence: None)
  Receive Date: 20070530
  Receipt Date: 20070516
  Transmission Date: 20071010
  Serious: Yes (Life-Threatening, Hospitalization, Other)
  Sender: FDA-Public Use
  Company Number: IMP_02910_2007

PATIENT
  Age: 41 Year
  Sex: Male

DRUGS (2)
  1. OXYCODONE HCL [Suspect]
     Indication: PAIN
  2. COLCHICINE () [Concomitant]

REACTIONS (14)
  - BRADYCARDIA [None]
  - DRUG INEFFECTIVE [None]
  - GOUT [None]
  - HYPOTENSION [None]
  - LETHARGY [None]
  - LOSS OF CONSCIOUSNESS [None]
  - MIOSIS [None]
  - OSTEOMYELITIS [None]
  - PUPILLARY REFLEX IMPAIRED [None]
  - PYREXIA [None]
  - RESPIRATORY DEPRESSION [None]
  - SINUS ARREST [None]
  - SLEEP APNOEA SYNDROME [None]
  - STUPOR [None]
